FAERS Safety Report 10021122 (Version 2)
Quarter: 2014Q2

REPORT INFORMATION
  Report Type: Spontaneous
  Country: US (occurrence: US)
  Receive Date: 20140319
  Receipt Date: 20140403
  Transmission Date: 20141212
  Serious: Yes (Other)
  Sender: FDA-Public Use
  Company Number: US-PFIZER INC-2014075549

PATIENT
  Age: 74 Year
  Sex: Female

DRUGS (4)
  1. SUTENT [Suspect]
     Indication: RENAL CANCER
     Dosage: UNK MG, UNK
     Dates: start: 20140220
  2. METOPROLOL TARTRATE [Concomitant]
     Dosage: UNK
  3. METFORMIN HYDROCHLORIDE [Concomitant]
  4. VITAMIN D3 [Concomitant]
     Dosage: UNK

REACTIONS (1)
  - Cardiac failure congestive [Unknown]
